FAERS Safety Report 5363758-3 (Version None)
Quarter: 2007Q2

REPORT INFORMATION
  Report Type: 
  Country: None (occurrence: None)
  Receive Date: 20070618
  Receipt Date: 20070618
  Transmission Date: 20071010
  Serious: Yes (Life-Threatening, Hospitalization, Disabling, Other)
  Sender: FDA-Public Use
  Company Number: None

PATIENT
  Age: 15 Year
  Sex: Male
  Weight: 77.1115 kg

DRUGS (1)
  1. IC MINOCYCLINE 100 MG TEVA [Suspect]
     Indication: ACNE
     Dates: start: 20070419, end: 20070527

REACTIONS (4)
  - FACE INJURY [None]
  - GRAND MAL CONVULSION [None]
  - JOINT DISLOCATION [None]
  - TEMPOROMANDIBULAR JOINT SYNDROME [None]
